FAERS Safety Report 9821687 (Version 2)
Quarter: 2014Q1

REPORT INFORMATION
  Report Type: Spontaneous
  Country: US (occurrence: US)
  Receive Date: 20140116
  Receipt Date: 20140304
  Transmission Date: 20141002
  Serious: No
  Sender: FDA-Public Use
  Company Number: US-PFIZER INC-2014011144

PATIENT
  Age: 78 Year
  Sex: Female

DRUGS (1)
  1. XALATAN [Suspect]
     Indication: GLAUCOMA
     Dosage: UNK, 1X/DAY (QHS)
     Route: 047

REACTIONS (3)
  - Visual impairment [Unknown]
  - Poor quality drug administered [Unknown]
  - Product quality issue [Unknown]
